FAERS Safety Report 17791507 (Version 2)
Quarter: 2020Q3

REPORT INFORMATION
  Report Type: Spontaneous
  Country: US (occurrence: US)
  Receive Date: 20200515
  Receipt Date: 20200721
  Transmission Date: 20201102
  Serious: Yes (Other)
  Sender: FDA-Public Use
  Company Number: US-BAYER-2020-083015

PATIENT
  Age: 16 Year
  Sex: Female
  Weight: 64.8 kg

DRUGS (3)
  1. MIRENA [Suspect]
     Active Substance: LEVONORGESTREL
     Indication: CONTRACEPTION
     Dosage: 20 ?G PER DAY, CONTINUOUSLY
     Route: 015
     Dates: start: 20190531
  2. IBUPROFEN. [Concomitant]
     Active Substance: IBUPROFEN
  3. MIRENA [Suspect]
     Active Substance: LEVONORGESTREL
     Indication: CONTRACEPTION
     Dosage: 20 ?G PER DAY, CONTINUOUSLY
     Route: 015

REACTIONS (9)
  - Vaginal haemorrhage [None]
  - Embedded device [None]
  - Ovarian cyst ruptured [None]
  - Pelvic pain [None]
  - Dysuria [None]
  - Uterine haemorrhage [None]
  - Genital haemorrhage [Not Recovered/Not Resolved]
  - Abdominal pain lower [None]
  - Menorrhagia [None]

NARRATIVE: CASE EVENT DATE: 20190519
